FAERS Safety Report 4710977-2 (Version None)
Quarter: 2005Q3

REPORT INFORMATION
  Report Type: 
  Country: None (occurrence: None)
  Receive Date: 20050711
  Receipt Date: 20050629
  Transmission Date: 20060218
  Serious: Yes (Hospitalization)
  Sender: FDA-Public Use
  Company Number: BE-JNJFOC-20050607372

PATIENT
  Age: 72 Year
  Sex: Male

DRUGS (7)
  1. INFLIXIMAB [Suspect]
     Indication: RHEUMATOID ARTHRITIS
     Route: 042
  2. METHOTREXATE [Concomitant]
     Indication: RHEUMATOID ARTHRITIS
     Route: 049
  3. MEDROL [Concomitant]
     Indication: RHEUMATOID ARTHRITIS
     Route: 049
  4. DURAGESIC-100 [Concomitant]
     Indication: RHEUMATOID ARTHRITIS
     Route: 065
  5. FOLIC ACID [Concomitant]
     Indication: PROPHYLAXIS
     Route: 049
  6. CALCIUM GLUCONATE [Concomitant]
     Indication: OSTEOPOROSIS
     Route: 049
  7. D CURE [Concomitant]
     Indication: OSTEOPOROSIS
     Route: 049

REACTIONS (2)
  - OSTEITIS [None]
  - WOUND INFECTION [None]
